FAERS Safety Report 13618654 (Version 1)
Quarter: 2017Q2

REPORT INFORMATION
  Report Type: Spontaneous
  Country: US (occurrence: US)
  Receive Date: 20170606
  Receipt Date: 20170606
  Transmission Date: 20170830
  Serious: No
  Sender: FDA-Public Use
  Company Number: US-009507513-1705USA015693

PATIENT
  Age: 58 Year
  Sex: Male

DRUGS (2)
  1. COZAAR [Suspect]
     Active Substance: LOSARTAN POTASSIUM
     Indication: BLOOD POTASSIUM DECREASED
  2. COZAAR [Suspect]
     Active Substance: LOSARTAN POTASSIUM
     Indication: HYPERTENSION
     Dosage: 50 MG, BID
     Route: 048
     Dates: start: 20170523

REACTIONS (2)
  - Product use in unapproved indication [Unknown]
  - Limb mass [Not Recovered/Not Resolved]

NARRATIVE: CASE EVENT DATE: 20170523
